FAERS Safety Report 9382178 (Version 2)
Quarter: 2013Q3

REPORT INFORMATION
  Report Type: Spontaneous
  Country: JP (occurrence: JP)
  Receive Date: 20130703
  Receipt Date: 20130726
  Transmission Date: 20140515
  Serious: Yes (Hospitalization, Other)
  Sender: FDA-Public Use
  Company Number: JP-009507513-1307JPN000743

PATIENT
  Age: 76 Year
  Sex: Male
  Weight: 69 kg

DRUGS (3)
  1. ZETIA TABLETS 10MG [Suspect]
     Indication: HYPERCHOLESTEROLAEMIA
     Dosage: 10 MG, QD
     Route: 048
     Dates: start: 20090313, end: 20130617
  2. CADUET [Concomitant]
     Dosage: 1 DF, QD, THE DIVIDED DOSE FREQUENCY IS UNCERTAIN
     Route: 048
     Dates: start: 20110905, end: 201306
  3. OLMETEC [Concomitant]
     Dosage: 20 MG, QD, DIVIDED DOSE FREQUQNCY IS UNCERTAIN
     Route: 048
     Dates: start: 20070129

REACTIONS (2)
  - Rhabdomyolysis [Recovered/Resolved]
  - Heat illness [Recovered/Resolved]
